FAERS Safety Report 7914260-3 (Version None)
Quarter: 2011Q4

REPORT INFORMATION
  Report Type: 
  Country: None (occurrence: None)
  Receive Date: 20111115
  Receipt Date: 20111108
  Transmission Date: 20120403
  Serious: Yes (Other)
  Sender: FDA-Public Use
  Company Number: US-BAXTER-2010BH003570

PATIENT
  Age: 56 Year
  Sex: Female
  Weight: 68 kg

DRUGS (38)
  1. HEPARIN SODIUM INJECTION [Suspect]
     Route: 042
     Dates: start: 20080425, end: 20080425
  2. WARFARIN SODIUM [Concomitant]
     Route: 065
  3. LASIX [Concomitant]
     Indication: PRODUCT USED FOR UNKNOWN INDICATION
     Route: 065
  4. POTASSIUM CHLORIDE [Concomitant]
     Indication: PRODUCT USED FOR UNKNOWN INDICATION
     Route: 065
  5. HEPARIN SODIUM INJECTION [Suspect]
     Route: 042
     Dates: start: 20080425, end: 20080425
  6. HEPARIN SODIUM INJECTION [Suspect]
     Route: 042
     Dates: start: 20080418, end: 20080418
  7. CATAPRES-TTS-1 [Concomitant]
     Indication: PRODUCT USED FOR UNKNOWN INDICATION
     Route: 065
  8. NOVOLOG [Concomitant]
     Indication: PRODUCT USED FOR UNKNOWN INDICATION
     Route: 065
  9. WARFARIN SODIUM [Concomitant]
     Route: 065
  10. INSULIN [Concomitant]
     Indication: PRODUCT USED FOR UNKNOWN INDICATION
     Route: 065
  11. HEPARIN SODIUM INJECTION [Suspect]
     Route: 058
     Dates: start: 20080421, end: 20080421
  12. VICODIN [Concomitant]
     Indication: PAIN
     Route: 065
  13. DOCUSATE SODIUM [Concomitant]
     Indication: PRODUCT USED FOR UNKNOWN INDICATION
     Route: 065
  14. FUROSEMIDE [Concomitant]
     Route: 065
  15. HEPARIN SODIUM 5,000 UNITS IN DEXTROSE 5% [Suspect]
     Route: 042
     Dates: start: 20080430, end: 20080505
  16. HEPARIN SODIUM INJECTION [Suspect]
     Route: 042
     Dates: start: 20080418, end: 20080418
  17. WARFARIN SODIUM [Concomitant]
     Indication: PRODUCT USED FOR UNKNOWN INDICATION
     Route: 065
  18. PERCOCET [Concomitant]
     Indication: PRODUCT USED FOR UNKNOWN INDICATION
     Route: 065
  19. FUROSEMIDE [Concomitant]
     Indication: PRODUCT USED FOR UNKNOWN INDICATION
     Route: 065
  20. HEPARIN SODIUM INJECTION [Suspect]
     Route: 042
     Dates: start: 20080425, end: 20080425
  21. FERROUS SULFATE TAB [Concomitant]
     Indication: PRODUCT USED FOR UNKNOWN INDICATION
     Route: 065
  22. AMIODARONE HCL [Concomitant]
     Indication: PRODUCT USED FOR UNKNOWN INDICATION
     Route: 065
  23. TORSEMIDE [Concomitant]
     Indication: PRODUCT USED FOR UNKNOWN INDICATION
     Route: 065
  24. HEPARIN SODIUM 5,000 UNITS IN DEXTROSE 5% [Suspect]
     Indication: COAGULOPATHY
     Route: 042
     Dates: start: 20080418, end: 20080425
  25. HEPARIN SODIUM INJECTION [Suspect]
     Route: 058
     Dates: start: 20080421, end: 20080421
  26. HEPARIN SODIUM INJECTION [Suspect]
     Route: 042
     Dates: start: 20080418, end: 20080418
  27. OMEPRAZOLE [Concomitant]
     Indication: PRODUCT USED FOR UNKNOWN INDICATION
     Route: 065
  28. HEPARIN SODIUM INJECTION [Suspect]
     Indication: TRICUSPID VALVE REPAIR
     Route: 058
     Dates: start: 20080418, end: 20080506
  29. HEPARIN SODIUM INJECTION [Suspect]
     Route: 042
     Dates: start: 20080421, end: 20080421
  30. HEPARIN SODIUM INJECTION [Suspect]
     Route: 042
     Dates: start: 20080421, end: 20080421
  31. HEPARIN SODIUM INJECTION [Suspect]
     Route: 042
     Dates: start: 20080425, end: 20080425
  32. HEPARIN SODIUM INJECTION [Suspect]
     Route: 042
     Dates: start: 20080418, end: 20080418
  33. CARDIZEM [Concomitant]
     Indication: PRODUCT USED FOR UNKNOWN INDICATION
     Route: 065
  34. ALPRAZOLAM [Concomitant]
     Indication: PRODUCT USED FOR UNKNOWN INDICATION
     Route: 065
  35. HEPARIN SODIUM INJECTION [Suspect]
     Indication: MITRAL VALVE REPAIR
     Route: 058
     Dates: start: 20080418, end: 20080506
  36. METOPROLOL SUCCINATE [Concomitant]
     Indication: PRODUCT USED FOR UNKNOWN INDICATION
     Route: 065
  37. XANAX [Concomitant]
     Indication: PRODUCT USED FOR UNKNOWN INDICATION
     Route: 065
  38. LEVOTHYROXINE SODIUM [Concomitant]
     Indication: PRODUCT USED FOR UNKNOWN INDICATION
     Route: 065

REACTIONS (9)
  - HYPERSENSITIVITY [None]
  - HEADACHE [None]
  - PYREXIA [None]
  - HAEMOTHORAX [None]
  - WHITE BLOOD CELL COUNT INCREASED [None]
  - ECCHYMOSIS [None]
  - ANAEMIA [None]
  - HAEMORRHAGE [None]
  - HYPOTENSION [None]
